FAERS Safety Report 24727644 (Version 2)
Quarter: 2024Q4

REPORT INFORMATION
  Report Type: Spontaneous
  Country: JP (occurrence: JP)
  Receive Date: 20241212
  Receipt Date: 20241217
  Transmission Date: 20250115
  Serious: Yes (Hospitalization, Other)
  Sender: AMGEN
  Company Number: JP-AMGEN-JPNSP2024240098

PATIENT
  Age: 82 Year
  Sex: Female

DRUGS (2)
  1. EVENITY [Suspect]
     Active Substance: ROMOSOZUMAB-AQQG
     Indication: Osteoporosis
     Dosage: 210 MILLIGRAM, QMO
     Route: 058
     Dates: start: 202407, end: 20241028
  2. VITAMIN D [Concomitant]
     Active Substance: VITAMIN D NOS
     Indication: Femur fracture
     Dosage: UNK
     Route: 065

REACTIONS (2)
  - Angina pectoris [Unknown]
  - Pneumonia [Unknown]

NARRATIVE: CASE EVENT DATE: 20240101
